FAERS Safety Report 14149660 (Version 4)
Quarter: 2018Q2

REPORT INFORMATION
  Report Type: Spontaneous
  Country: US (occurrence: US)
  Receive Date: 20171101
  Receipt Date: 20180523
  Transmission Date: 20180711
  Serious: Yes (Other)
  Sender: FDA-Public Use
  Company Number: US-BAYER-2017-194435

PATIENT
  Age: 35 Year
  Sex: Male

DRUGS (5)
  1. KOGENATE FS [Suspect]
     Active Substance: ANTIHEMOPHILIC FACTOR, HUMAN RECOMBINANT
     Indication: FACTOR VIII DEFICIENCY
     Dosage: 4750 U, PRN TOTAL DOSES AND LAST DOSE PRIOR THE EVENT NOT PROVIDED
     Dates: start: 20170809
  2. KOGENATE FS [Suspect]
     Active Substance: ANTIHEMOPHILIC FACTOR, HUMAN RECOMBINANT
     Indication: FACTOR VIII DEFICIENCY
     Dosage: 2 DF, UNK
     Route: 042
     Dates: start: 201805
  3. KOGENATE FS [Suspect]
     Active Substance: ANTIHEMOPHILIC FACTOR, HUMAN RECOMBINANT
     Indication: FACTOR VIII DEFICIENCY
     Dosage: 2 DF, TO TREAT THE ADVERSE EVENT
  4. KOGENATE FS [Suspect]
     Active Substance: ANTIHEMOPHILIC FACTOR, HUMAN RECOMBINANT
     Indication: FACTOR VIII DEFICIENCY
     Dosage: 3 DF, ONCE
     Dates: start: 201710, end: 201710
  5. KOGENATE FS [Suspect]
     Active Substance: ANTIHEMOPHILIC FACTOR, HUMAN RECOMBINANT
     Indication: FACTOR VIII DEFICIENCY
     Dosage: 4750 U, PRN, TWO DOSES
     Route: 042
     Dates: start: 20171011

REACTIONS (4)
  - Endoscopy [None]
  - Joint injury [None]
  - Nephrolithiasis [None]
  - Haemorrhage [None]

NARRATIVE: CASE EVENT DATE: 20171022
